FAERS Safety Report 4630768-0 (Version None)
Quarter: 2005Q2

REPORT INFORMATION
  Report Type: 
  Country: None (occurrence: None)
  Receive Date: 20050406
  Receipt Date: 20050325
  Transmission Date: 20051028
  Serious: Yes (Disabling, Other)
  Sender: FDA-Public Use
  Company Number: 2005025370

PATIENT
  Sex: Male

DRUGS (1)
  1. DILANTIN [Suspect]
     Indication: CONVULSION
     Dosage: 375 MG (125 MG, 3 IN 1 D), ORAL
     Route: 048
     Dates: end: 20050203

REACTIONS (4)
  - COGNITIVE DETERIORATION [None]
  - DRUG TOXICITY [None]
  - LETHARGY [None]
  - STARING [None]
